FAERS Safety Report 5946175-4 (Version None)
Quarter: 2008Q4

REPORT INFORMATION
  Report Type: 
  Country: None (occurrence: None)
  Receive Date: 20081106
  Receipt Date: 20081024
  Transmission Date: 20090506
  Serious: Yes (Life-Threatening, Other)
  Sender: FDA-Public Use
  Company Number: MC200600697

PATIENT
  Age: 74 Year
  Sex: Female
  Weight: 82 kg

DRUGS (9)
  1. ANGIOMAX [Suspect]
     Indication: PERCUTANEOUS CORONARY INTERVENTION
     Dosage: 61.5, BOLUS, INTRAVENOUS 143.5, INTRAVENOUS
     Route: 042
     Dates: start: 20061002, end: 20061002
  2. PANTOPRAZOLE SODIUM [Concomitant]
  3. CEFUROXIME [Concomitant]
  4. CLOPIDOGREL [Concomitant]
  5. ASPIRIN [Concomitant]
  6. BISOCARD /00802601/ (BISOPROLOL) [Concomitant]
  7. ATORVASTATIN CALCIUM [Concomitant]
  8. CILAZAPRIL (CILAZAPRIL) [Concomitant]
  9. FUROSEMIDE [Concomitant]

REACTIONS (10)
  - ANURIA [None]
  - BLOOD CREATINE PHOSPHOKINASE INCREASED [None]
  - BLOOD CREATINE PHOSPHOKINASE MB INCREASED [None]
  - BLOOD PRESSURE DECREASED [None]
  - CARDIOGENIC SHOCK [None]
  - CHEST PAIN [None]
  - DISEASE RECURRENCE [None]
  - DYSPNOEA [None]
  - HYPOTONIA [None]
  - THROMBOSIS IN DEVICE [None]
